FAERS Safety Report 25617090 (Version 1)
Quarter: 2025Q3

REPORT INFORMATION
  Report Type: Spontaneous
  Country: US (occurrence: None)
  Receive Date: 20250728
  Receipt Date: 20250728
  Transmission Date: 20251020
  Serious: Yes (unspecified)
  Sender: FDA-CTU
  Company Number: None

PATIENT
  Age: 44 Year
  Sex: Male
  Weight: 81 kg

DRUGS (1)
  1. HERBALS\MITRAGYNINE [Suspect]
     Active Substance: HERBALS\MITRAGYNINE
     Indication: Sleep disorder
     Route: 048
     Dates: start: 20250101, end: 20250721

REACTIONS (2)
  - Quality of life decreased [None]
  - Drug dependence [None]

NARRATIVE: CASE EVENT DATE: 20250721
